FAERS Safety Report 15092925 (Version 1)
Quarter: 2018Q2

REPORT INFORMATION
  Report Type: Spontaneous
  Country: US (occurrence: US)
  Receive Date: 20180629
  Receipt Date: 20180629
  Transmission Date: 20180711
  Serious: No
  Sender: FDA-Public Use
  Company Number: US-MATRIXX INITIATIVES, INC.-2051118

PATIENT
  Age: 31 Year
  Sex: Male

DRUGS (1)
  1. ZICAM COLD REMEDY [Suspect]
     Active Substance: HOMEOPATHICS\ZINC ACETATE\ZINC GLUCONATE
     Indication: NASOPHARYNGITIS
     Route: 050
     Dates: start: 20180624, end: 20180627

REACTIONS (2)
  - Anosmia [None]
  - Dysgeusia [None]
